FAERS Safety Report 7644920-3 (Version None)
Quarter: 2011Q3

REPORT INFORMATION
  Report Type: 
  Country: None (occurrence: None)
  Receive Date: 20110729
  Receipt Date: 20110712
  Transmission Date: 20111222
  Serious: Yes (Hospitalization)
  Sender: FDA-Public Use
  Company Number: US-GLAXOSMITHKLINE-A0749334A

PATIENT
  Age: 49 Year
  Sex: Female
  Weight: 127.3 kg

DRUGS (8)
  1. AVANDIA [Suspect]
     Indication: DIABETES MELLITUS
     Dosage: 8MG PER DAY
     Route: 048
     Dates: start: 20060301, end: 20060701
  2. ZOCOR [Concomitant]
  3. HYZAAR [Concomitant]
  4. HYDROCHLOROTHIAZIDE [Concomitant]
  5. LEXAPRO [Concomitant]
  6. TEGRETOL [Concomitant]
  7. ABILIFY [Concomitant]
  8. INSULIN [Concomitant]

REACTIONS (4)
  - CARDIAC FAILURE CONGESTIVE [None]
  - MYOCARDIAL INFARCTION [None]
  - HEART INJURY [None]
  - ARRHYTHMIA [None]
